FAERS Safety Report 18485277 (Version 1)
Quarter: 2020Q4

REPORT INFORMATION
  Report Type: Spontaneous
  Country: UA (occurrence: UA)
  Receive Date: 20201110
  Receipt Date: 20201110
  Transmission Date: 20210114
  Serious: Yes (Hospitalization)
  Sender: FDA-Public Use
  Company Number: UA-PFIZER INC-2020423466

PATIENT
  Age: 49 Year
  Sex: Female

DRUGS (6)
  1. METHYLPREDNISOLONE. [Suspect]
     Active Substance: METHYLPREDNISOLONE
     Dosage: 8 MG, (ONCE EVERY 5 DAYS), REDUCED
     Dates: start: 2018
  2. DICINONE [Concomitant]
     Indication: IMMUNE THROMBOCYTOPENIA
     Dosage: UNK
     Dates: start: 2018
  3. METHYLPREDNISOLONE. [Suspect]
     Active Substance: METHYLPREDNISOLONE
     Dosage: 88 MG, DAILY, (USED AGAIN FOR TWO MONTHS)
     Dates: start: 2018
  4. METHYLPREDNISOLONE. [Suspect]
     Active Substance: METHYLPREDNISOLONE
     Dosage: 4 MG, DAILY
     Dates: start: 2018
  5. ASCORBIC ACID. [Concomitant]
     Active Substance: ASCORBIC ACID
     Dosage: UNK
     Dates: start: 2018
  6. METHYLPREDNISOLONE. [Suspect]
     Active Substance: METHYLPREDNISOLONE
     Indication: IMMUNE THROMBOCYTOPENIA
     Dosage: 88 MG, DAILY, (32 MG IN THE MORNING 32 MG IN THE AFTERNOON AND 24 MG IN THE EVENING)
     Dates: start: 2018

REACTIONS (4)
  - Myopathy [Recovering/Resolving]
  - Faecaloma [Unknown]
  - Diabetes mellitus [Unknown]
  - Gastrointestinal hypomotility [Unknown]

NARRATIVE: CASE EVENT DATE: 2018
